FAERS Safety Report 8756550 (Version 2)
Quarter: 2012Q4

REPORT INFORMATION
  Report Type: Spontaneous
  Country: JP (occurrence: None)
  Receive Date: 20120814
  Receipt Date: 20120823
  Transmission Date: 20130627
  Serious: Yes (Other)
  Sender: FDA-Public Use
  Company Number: JP-2012-15951

PATIENT
  Age: 70 Year
  Sex: Male

DRUGS (1)
  1. PLETAAL [Suspect]
     Route: 048

REACTIONS (2)
  - Loss of consciousness [None]
  - Cerebrovascular disorder [None]
